FAERS Safety Report 10202525 (Version 2)
Quarter: 2014Q3

REPORT INFORMATION
  Report Type: Report from Study
  Country: US (occurrence: US)
  Receive Date: 20140528
  Receipt Date: 20140801
  Transmission Date: 20150326
  Serious: Yes (Other)
  Sender: FDA-Public Use
  Company Number: PHEH2014US010784

PATIENT
  Age: 26 Year
  Sex: Female

DRUGS (1)
  1. TOBI [Suspect]
     Active Substance: TOBRAMYCIN
     Indication: CYSTIC FIBROSIS
     Dosage: UNK
     Route: 055
     Dates: start: 1995, end: 2013

REACTIONS (3)
  - Cystic fibrosis related diabetes [Unknown]
  - Forced expiratory volume decreased [Recovering/Resolving]
  - Liver disorder [Unknown]
